FAERS Safety Report 5395619-8 (Version None)
Quarter: 2007Q3

REPORT INFORMATION
  Report Type: 
  Country: None (occurrence: None)
  Receive Date: 20070720
  Receipt Date: 20070713
  Transmission Date: 20080115
  Serious: Yes (Death)
  Sender: FDA-Public Use
  Company Number: THQ2007A00675

PATIENT
  Age: 46 Year
  Sex: Male

DRUGS (5)
  1. ACTOS [Suspect]
     Indication: DIABETES MELLITUS
     Dosage: 15 MG (15 MG, 1 IN 1 D) PER ORAL
     Route: 048
     Dates: start: 20030429, end: 20030626
  2. ATACAND [Concomitant]
  3. DIAMICRON (GLICLAZIDE) [Concomitant]
  4. URSODIOL [Concomitant]
  5. GARLIC OIL/BIPHENYL-DIMETHYL-DICARBOXYLATE [Concomitant]

REACTIONS (2)
  - CONDITION AGGRAVATED [None]
  - HEPATIC CIRRHOSIS [None]
